FAERS Safety Report 5239284-9 (Version None)
Quarter: 2007Q1

REPORT INFORMATION
  Report Type: 
  Country: None (occurrence: None)
  Receive Date: 20070216
  Receipt Date: 20070205
  Transmission Date: 20070707
  Serious: Yes (Hospitalization, Other)
  Sender: FDA-Public Use
  Company Number: US-NOVOPROD-252298

PATIENT
  Sex: Female
  Weight: 75.283 kg

DRUGS (13)
  1. ACTIVELLA [Suspect]
     Indication: MENOPAUSAL SYMPTOMS
     Dosage: UNK, UNK
     Dates: start: 20020925, end: 20040101
  2. PROVERA [Suspect]
     Indication: MENORRHAGIA
     Dosage: 10 MG, UNK
     Dates: start: 19870701
  3. PROVERA [Suspect]
     Dosage: 2.5 MG, UNK
     Dates: start: 19940101, end: 20020101
  4. PREMARIN [Suspect]
     Indication: MENORRHAGIA
     Dosage: .625 MG, UNK
     Dates: start: 19800101, end: 20020101
  5. PREMPRO [Suspect]
     Indication: MENOPAUSAL SYMPTOMS
  6. MEDROXYPROGESTERONE ACETATE [Suspect]
     Indication: MENOPAUSAL SYMPTOMS
     Dosage: 2.5 MG, UNK
     Dates: start: 19800101, end: 20020101
  7. LIPITOR [Concomitant]
     Indication: BLOOD CHOLESTEROL INCREASED
     Dates: start: 19980101, end: 20050101
  8. FOSAMAX [Concomitant]
     Indication: OSTEOPOROSIS
     Dosage: 70 MG, UNK
     Dates: start: 20030101
  9. ZETIA [Concomitant]
     Indication: ILL-DEFINED DISORDER
     Dosage: UNK, UNK
     Dates: start: 20050101
  10. MOBIC [Concomitant]
     Dates: start: 20050101
  11. CELEBREX [Concomitant]
     Indication: ILL-DEFINED DISORDER
     Dosage: 100 MG, UNK
     Dates: start: 19990101, end: 20030101
  12. CLARITIN [Concomitant]
     Indication: ILL-DEFINED DISORDER
     Dates: start: 20000101
  13. ZOLOFT [Concomitant]
     Indication: STRESS
     Dates: start: 19990101, end: 20020101

REACTIONS (4)
  - ARTHRALGIA [None]
  - BREAST CANCER [None]
  - OESTROGEN RECEPTOR ASSAY POSITIVE [None]
  - PROGESTERONE RECEPTOR ASSAY POSITIVE [None]
